FAERS Safety Report 8234956-6 (Version None)
Quarter: 2012Q1

REPORT INFORMATION
  Report Type: 
  Country: None (occurrence: None)
  Receive Date: 20120326
  Receipt Date: 20120322
  Transmission Date: 20120608
  Serious: Yes (Other)
  Sender: FDA-Public Use
  Company Number: US-PFIZER INC-2012063671

PATIENT
  Sex: Male
  Weight: 128 kg

DRUGS (2)
  1. GEODON [Suspect]
     Indication: SCHIZOPHRENIA
     Dosage: 40 MG, 2X/DAY
     Route: 048
     Dates: start: 20110701, end: 20111201
  2. GEODON [Suspect]
     Dosage: 20 MG, UNK
     Route: 048
     Dates: end: 20120101

REACTIONS (8)
  - DEPRESSION [None]
  - DELUSION [None]
  - PARANOIA [None]
  - DYSPNOEA [None]
  - DISTURBANCE IN ATTENTION [None]
  - MENTAL DISORDER [None]
  - MENTAL IMPAIRMENT [None]
  - WITHDRAWAL SYNDROME [None]
